FAERS Safety Report 4588602-3 (Version None)
Quarter: 2005Q1

REPORT INFORMATION
  Report Type: 
  Country: None (occurrence: None)
  Receive Date: 20050222
  Receipt Date: 20050211
  Transmission Date: 20050727
  Serious: Yes (Other)
  Sender: FDA-Public Use
  Company Number: DE-ROCHE-394985

PATIENT
  Age: 6 Year
  Sex: Female

DRUGS (2)
  1. CEFTRIAXONE SODIUM [Suspect]
     Indication: MENINGITIS PNEUMOCOCCAL
     Route: 065
  2. FLOXACILLIN [Concomitant]
     Dosage: 200 MG/KG/DAY GIVEN IN FOUR DOSES.

REACTIONS (2)
  - CALCULUS URETERIC [None]
  - CHOLELITHIASIS [None]
